FAERS Safety Report 16042115 (Version 1)
Quarter: 2019Q1

REPORT INFORMATION
  Report Type: Spontaneous
  Country: NL (occurrence: NL)
  Receive Date: 20190306
  Receipt Date: 20190306
  Transmission Date: 20190418
  Serious: Yes (Congenital Anomaly)
  Sender: FDA-Public Use
  Company Number: NL-MYLANLABS-2019M1018716

PATIENT
  Sex: Male

DRUGS (1)
  1. ISOTRETINOIN. [Suspect]
     Active Substance: ISOTRETINOIN
     Indication: ACNE
     Dosage: ONBEKEND
     Route: 064
     Dates: start: 2018

REACTIONS (2)
  - Foetal exposure during pregnancy [Recovered/Resolved]
  - Spina bifida [Not Recovered/Not Resolved]
